FAERS Safety Report 4969329-2 (Version None)
Quarter: 2006Q2

REPORT INFORMATION
  Report Type: 
  Country: None (occurrence: None)
  Receive Date: 20060405
  Receipt Date: 20060322
  Transmission Date: 20061013
  Serious: Yes (Death, Other)
  Sender: FDA-Public Use
  Company Number: USA-2006-0023825

PATIENT
  Age: 45 Year
  Sex: Female

DRUGS (11)
  1. OXYCONTIN [Suspect]
     Indication: PAIN
     Dosage: 80 MG, TID, UNK
  2. CLONIDINE [Concomitant]
  3. DEXTROMETHORPHAN (DEXTROMETHORPHAN) [Concomitant]
  4. ACETAMINOPHEN CAPSULE [Concomitant]
  5. SOLU-MEDROL [Concomitant]
  6. FLUOXETINE [Concomitant]
  7. ZOLPIDEM TARTRATE [Concomitant]
  8. NAPROXEN [Concomitant]
  9. HYDROCODONE BITARTRATE [Concomitant]
  10. CLARITHROMYCIN [Concomitant]
  11. NORTRIPTYLINE (NORTRIPTYLINE) [Concomitant]

REACTIONS (6)
  - BRONCHITIS [None]
  - COMPLETED SUICIDE [None]
  - DEPRESSION [None]
  - INTENTIONAL DRUG MISUSE [None]
  - OVERDOSE [None]
  - PNEUMONIA [None]
